FAERS Safety Report 16107754 (Version 1)
Quarter: 2019Q1

REPORT INFORMATION
  Report Type: Spontaneous
  Country: DE (occurrence: DE)
  Receive Date: 20190322
  Receipt Date: 20190322
  Transmission Date: 20190418
  Serious: Yes (Life-Threatening, Hospitalization, Other)
  Sender: FDA-Public Use
  Company Number: DE-GILEAD-2019-0397428

PATIENT
  Age: 46 Year
  Sex: Male
  Weight: 75 kg

DRUGS (6)
  1. EMTRIVA [Suspect]
     Active Substance: EMTRICITABINE
     Dosage: UNK
     Route: 048
     Dates: start: 20031219, end: 20040107
  2. VIDEX [Suspect]
     Active Substance: DIDANOSINE
     Indication: HIV INFECTION CDC CATEGORY C
     Dosage: DOSAGE REGIMEN REPORTED AS 400 MG-0-0.
     Route: 048
  3. EMTRIVA [Suspect]
     Active Substance: EMTRICITABINE
     Indication: HIV INFECTION CDC CATEGORY C
     Dosage: 200 MG
     Route: 048
     Dates: start: 20040114, end: 20040114
  4. FUZEON [Suspect]
     Active Substance: ENFUVIRTIDE
     Indication: HIV INFECTION CDC CATEGORY C
     Dosage: 200 MG, QD
     Route: 058
     Dates: start: 20040119, end: 20040119
  5. FUZEON [Suspect]
     Active Substance: ENFUVIRTIDE
     Dosage: 200 MG, QD
     Route: 058
     Dates: end: 20040114
  6. KALETRA [Concomitant]
     Active Substance: LOPINAVIR\RITONAVIR
     Indication: HIV INFECTION CDC CATEGORY C
     Dosage: 2 DF, TID
     Route: 048

REACTIONS (7)
  - Pyrexia [Recovered/Resolved]
  - Dyspnoea [Recovered/Resolved]
  - Hypersensitivity [Recovered/Resolved]
  - Urticaria [Recovered/Resolved]
  - Conjunctivitis [Recovered/Resolved]
  - Anaphylactic shock [Recovered/Resolved]
  - Generalised erythema [Recovered/Resolved]

NARRATIVE: CASE EVENT DATE: 20040107
